FAERS Safety Report 10691178 (Version 2)
Quarter: 2015Q1

REPORT INFORMATION
  Report Type: Spontaneous
  Country: US (occurrence: US)
  Receive Date: 20150105
  Receipt Date: 20150304
  Transmission Date: 20150720
  Serious: Yes (Death, Hospitalization, Other)
  Sender: FDA-Public Use
  Company Number: US-ARIAD PHARMACEUTICALS, INC-2014US004345

PATIENT

DRUGS (6)
  1. ICLUSIG [Suspect]
     Active Substance: PONATINIB
     Indication: ACUTE LYMPHOCYTIC LEUKAEMIA
     Dosage: 15 MG, QD
     Route: 048
  2. DEXAMETHASONE. [Concomitant]
     Active Substance: DEXAMETHASONE
     Indication: PRODUCT USED FOR UNKNOWN INDICATION
     Dosage: UNK
     Dates: start: 20140101
  3. ICLUSIG [Suspect]
     Active Substance: PONATINIB
     Dosage: 15 MG, QD
     Dates: start: 20140129
  4. ICLUSIG [Suspect]
     Active Substance: PONATINIB
     Dosage: 45 MG, QD
     Dates: start: 20140101
  5. ICLUSIG [Suspect]
     Active Substance: PONATINIB
     Dosage: 30 MG, QD
     Dates: start: 20140115, end: 20140122
  6. ICLUSIG [Suspect]
     Active Substance: PONATINIB
     Dosage: 15 MG, QOD
     Dates: end: 201408

REACTIONS (13)
  - Fatigue [Unknown]
  - Abdominal pain [Recovered/Resolved]
  - Pancreatitis [Unknown]
  - Parotitis [Unknown]
  - Back pain [Unknown]
  - Febrile neutropenia [Not Recovered/Not Resolved]
  - Mass [Unknown]
  - Pain [Unknown]
  - Pancytopenia [Not Recovered/Not Resolved]
  - Neoplasm progression [Fatal]
  - Drug ineffective [Unknown]
  - Haemorrhoids [Recovered/Resolved]
  - Constipation [Unknown]
